FAERS Safety Report 12804573 (Version 1)
Quarter: 2016Q4

REPORT INFORMATION
  Report Type: Spontaneous
  Country: US (occurrence: US)
  Receive Date: 20161003
  Receipt Date: 20161003
  Transmission Date: 20170207
  Serious: No
  Sender: FDA-Public Use
  Company Number: US-BION-20160191

PATIENT
  Age: 72 Year
  Sex: Female
  Weight: 48.08 kg

DRUGS (3)
  1. UNSPECIFIED PRODUCT FOR ACID REFLUX. [Concomitant]
  2. LOPRAMIDE HCL CAPSULES [Suspect]
     Active Substance: LOPERAMIDE HYDROCHLORIDE
     Indication: DIARRHOEA
     Dosage: 1-2 SOFTGELS PER DAY/AS NEEDED
     Route: 048
  3. BLOOD PRESSURE MEDICATION, [Concomitant]

REACTIONS (2)
  - Throat irritation [Unknown]
  - Drug effect variable [Recovered/Resolved]
